FAERS Safety Report 6113100-5 (Version None)
Quarter: 2009Q1

REPORT INFORMATION
  Report Type: 
  Country: None (occurrence: None)
  Receive Date: 20090312
  Receipt Date: 20090310
  Transmission Date: 20090719
  Serious: Yes (Hospitalization)
  Sender: FDA-Public Use
  Company Number: DE-MERCK-0903DEU00116

PATIENT
  Age: 69 Year
  Sex: Male
  Weight: 85 kg

DRUGS (10)
  1. ZOCOR [Suspect]
     Indication: HYPERLIPIDAEMIA
     Route: 048
     Dates: start: 20060101
  2. PHENPROCOUMON [Suspect]
     Indication: PERIPHERAL ARTERIAL OCCLUSIVE DISEASE
     Route: 048
     Dates: start: 20070301, end: 20080821
  3. PHENPROCOUMON [Suspect]
     Route: 048
     Dates: start: 20080907
  4. BISOPROLOL [Concomitant]
     Indication: CORONARY ARTERY DISEASE
     Route: 048
     Dates: start: 20060101
  5. INSULIN HUMAN, ISOPHANE [Concomitant]
     Indication: TYPE 2 DIABETES MELLITUS
     Route: 051
     Dates: start: 20070101
  6. RAMIPRIL [Concomitant]
     Indication: HYPERTENSION
     Route: 048
     Dates: start: 20080401
  7. TORSEMIDE [Concomitant]
     Indication: HYPERTENSION
     Route: 048
  8. ASPIRIN [Suspect]
     Indication: PERIPHERAL ARTERIAL OCCLUSIVE DISEASE
     Route: 048
     Dates: start: 19900101, end: 20080821
  9. ASPIRIN [Suspect]
     Route: 048
     Dates: start: 20080903
  10. AMLODIPINE [Suspect]
     Indication: HYPERTENSION
     Route: 048

REACTIONS (1)
  - GASTROINTESTINAL HAEMORRHAGE [None]
